FAERS Safety Report 7001030-6 (Version None)
Quarter: 2010Q3

REPORT INFORMATION
  Report Type: 
  Country: None (occurrence: None)
  Receive Date: 20100920
  Receipt Date: 20070515
  Transmission Date: 20110219
  Serious: Yes (Other)
  Sender: FDA-Public Use
  Company Number: US-ASTRAZENECA-2006UW11417

PATIENT
  Age: 22523 Day
  Sex: Male
  Weight: 95.7 kg

DRUGS (7)
  1. SEROQUEL [Suspect]
     Indication: BIPOLAR DISORDER
     Dosage: 25MG-300MG
     Route: 048
     Dates: start: 20021001
  2. LITHIUM [Concomitant]
     Dates: start: 19980101
  3. PHENERGAN [Concomitant]
     Indication: NAUSEA
     Dosage: 25 MG EVERY 4 - 6 HOURLY AS REQUIRED
     Route: 048
     Dates: start: 19981022
  4. PHENERGAN [Concomitant]
     Indication: VOMITING
     Dosage: 25 MG EVERY 4 - 6 HOURLY AS REQUIRED
     Route: 048
     Dates: start: 19981022
  5. NEURONTIN [Concomitant]
     Dosage: TWICW A DAY
     Dates: start: 19981022
  6. DEMEROL [Concomitant]
     Indication: PAIN
     Dosage: 50 MG EVERY 4 - 6 HOURLY PRN
     Route: 048
  7. KLONOPIN [Concomitant]
     Indication: INSOMNIA
     Dosage: 0.5 MG, 1 - 2 EVERY NIGHT, 1000 MG A DAY
     Route: 048
     Dates: start: 19981022

REACTIONS (3)
  - DIABETES MELLITUS [None]
  - DIABETES MELLITUS INADEQUATE CONTROL [None]
  - PANCREATITIS [None]
